FAERS Safety Report 4762723-4 (Version None)
Quarter: 2005Q3

REPORT INFORMATION
  Report Type: 
  Country: None (occurrence: None)
  Receive Date: 20050907
  Receipt Date: 20031010
  Transmission Date: 20060218
  Serious: Yes (Life-Threatening, Hospitalization)
  Sender: FDA-Public Use
  Company Number: CH-MERCK-0310CHE00016

PATIENT
  Age: 68 Year
  Sex: Female
  Weight: 62 kg

DRUGS (8)
  1. VIOXX [Suspect]
     Indication: PAIN IN EXTREMITY
     Route: 048
     Dates: start: 20030625, end: 20030702
  2. LITHIUM CARBONATE [Suspect]
     Indication: PSYCHOTIC DISORDER
     Route: 048
     Dates: start: 19910101, end: 20030703
  3. LITHIUM CARBONATE [Suspect]
     Route: 048
     Dates: start: 20030701
  4. PIPAMPERONE HYDROCHLORIDE [Concomitant]
     Indication: PSYCHOTIC DISORDER
     Route: 048
  5. CARBAMAZEPINE [Suspect]
     Indication: PSYCHOTIC DISORDER
     Route: 048
     Dates: start: 19910101, end: 20030703
  6. CARBAMAZEPINE [Suspect]
     Route: 048
     Dates: start: 20030701
  7. MIRTAZAPINE [Concomitant]
     Indication: PSYCHOTIC DISORDER
     Route: 048
     Dates: start: 20030401
  8. ZOPICLONE [Concomitant]
     Indication: PSYCHOTIC DISORDER
     Route: 048
     Dates: start: 19970101

REACTIONS (10)
  - BLOOD CREATININE INCREASED [None]
  - BRADYCARDIA [None]
  - DRUG INTERACTION [None]
  - ELECTROCARDIOGRAM ABNORMAL [None]
  - HEADACHE [None]
  - HYPOTENSION [None]
  - MALAISE [None]
  - THERAPEUTIC AGENT TOXICITY [None]
  - TREMOR [None]
  - VOMITING [None]
